FAERS Safety Report 22250138 (Version 2)
Quarter: 2023Q2

REPORT INFORMATION
  Report Type: Spontaneous
  Country: US (occurrence: US)
  Receive Date: 20230425
  Receipt Date: 20230425
  Transmission Date: 20230721
  Serious: Yes (Other)
  Sender: FDA-Public Use
  Company Number: US-PFIZER INC-PV202300072687

PATIENT
  Age: 67 Year
  Sex: Male

DRUGS (1)
  1. BOSULIF [Suspect]
     Active Substance: BOSUTINIB MONOHYDRATE
     Dosage: 400 MG

REACTIONS (4)
  - Thrombocytopenia [Unknown]
  - Cerebrovascular accident [Unknown]
  - Leukocytosis [Unknown]
  - Anaemia [Unknown]
